FAERS Safety Report 20930111 (Version 1)
Quarter: 2022Q2

REPORT INFORMATION
  Report Type: Spontaneous
  Country: IT (occurrence: IT)
  Receive Date: 20220608
  Receipt Date: 20220608
  Transmission Date: 20220721
  Serious: Yes (Other)
  Sender: FDA-Public Use
  Company Number: IT-LUPIN PHARMACEUTICALS INC.-2022-08144

PATIENT
  Age: 67 Year
  Sex: Male

DRUGS (6)
  1. DECITABINE [Suspect]
     Active Substance: DECITABINE
     Indication: Myelodysplastic syndrome
     Dosage: UNK
     Route: 065
  2. RITUXIMAB [Concomitant]
     Active Substance: RITUXIMAB
     Indication: Hairy cell leukaemia
     Dosage: UNK, TWO DOSES ADMINISTERED UNDER THE HCL-PG03 TRIAL ON DAYS 1 AND 15
     Route: 065
  3. RITUXIMAB [Concomitant]
     Active Substance: RITUXIMAB
     Dosage: UNK, TWO DOSES ADMINISTERED UNDER THE HCL-PG03 TRIAL ON DAYS 1 AND 15
     Route: 065
  4. CLADRIBINE [Concomitant]
     Active Substance: CLADRIBINE
     Indication: Hairy cell leukaemia
     Dosage: UNK, TREATMENT COURSE REPEATED THREE TIMES
     Route: 065
  5. VEMURAFENIB [Concomitant]
     Active Substance: VEMURAFENIB
     Indication: Hairy cell leukaemia
     Dosage: 960 MG, BID, ADMINISTERED UNDER THE HCL-PG03 TRIAL
     Route: 065
  6. INTERFERON [Concomitant]
     Active Substance: INTERFERON
     Indication: Hairy cell leukaemia
     Dosage: UNK, TREATMENT COURSE REPEATED FOUR TIMES
     Route: 065

REACTIONS (2)
  - Drug ineffective for unapproved indication [Unknown]
  - Off label use [Unknown]
